FAERS Safety Report 4382883-7 (Version None)
Quarter: 2004Q2

REPORT INFORMATION
  Report Type: 
  Country: None (occurrence: None)
  Receive Date: 20040602
  Receipt Date: 20031001
  Transmission Date: 20050107
  Serious: Yes (Hospitalization)
  Sender: FDA-Public Use
  Company Number: NSADSS2002028648

PATIENT
  Age: 77 Year
  Sex: Female
  Weight: 68.4932 kg

DRUGS (10)
  1. PROPULSID [Suspect]
     Dosage: SEE IMAGE
     Dates: start: 19980528, end: 19990330
  2. PROPULSID [Suspect]
     Dosage: SEE IMAGE
     Dates: start: 19960927
  3. PROPULSID [Suspect]
     Dosage: SEE IMAGE
     Dates: start: 20020102
  4. SEREVENT [Concomitant]
  5. FLOVENT [Concomitant]
  6. PROVENTIL [Concomitant]
  7. ATROVENT (IPRATOPIUM BROMIDE) [Concomitant]
  8. PREDNISONE TAB [Concomitant]
  9. PRILOSEC [Concomitant]
  10. VALIUM [Concomitant]

REACTIONS (7)
  - ABDOMINAL PAIN [None]
  - CHEST PAIN [None]
  - DIZZINESS [None]
  - MEDICATION ERROR [None]
  - PALPITATIONS [None]
  - VENTRICULAR ARRHYTHMIA [None]
  - VENTRICULAR EXTRASYSTOLES [None]
